FAERS Safety Report 20674147 (Version 2)
Quarter: 2024Q1

REPORT INFORMATION
  Report Type: Spontaneous
  Country: US (occurrence: US)
  Receive Date: 20220405
  Receipt Date: 20240220
  Transmission Date: 20240409
  Serious: Yes (Other)
  Sender: FDA-Public Use
  Company Number: US-PFIZER INC-202200403439

PATIENT
  Age: 66 Year
  Sex: Male

DRUGS (1)
  1. INLYTA [Suspect]
     Active Substance: AXITINIB
     Dosage: UNK
     Dates: start: 20220307

REACTIONS (9)
  - Foreign body in throat [Unknown]
  - Throat irritation [Unknown]
  - Pyrexia [Unknown]
  - Cardiac discomfort [Recovered/Resolved]
  - Dysphagia [Unknown]
  - Muscle tension dysphonia [Unknown]
  - Diarrhoea [Unknown]
  - Product shape issue [Unknown]
  - Product dose omission issue [Unknown]

NARRATIVE: CASE EVENT DATE: 20220301
